FAERS Safety Report 6685126-4 (Version None)
Quarter: 2010Q2

REPORT INFORMATION
  Report Type: 
  Country: None (occurrence: None)
  Receive Date: 20100416
  Receipt Date: 20091110
  Transmission Date: 20101027
  Serious: No
  Sender: FDA-Public Use
  Company Number: US-BRISTOL-MYERS SQUIBB COMPANY-14851232

PATIENT

DRUGS (4)
  1. CYCLOPHOSPHAMIDE [Suspect]
  2. CARBOPLATIN [Suspect]
  3. TAXOTERE [Suspect]
     Route: 042
  4. HERCEPTIN [Suspect]

REACTIONS (1)
  - RASH [None]
